FAERS Safety Report 9548710 (Version 2)
Quarter: 2014Q3

REPORT INFORMATION
  Report Type: Spontaneous
  Country: US (occurrence: None)
  Receive Date: 20130724
  Receipt Date: 20140702
  Transmission Date: 20150326
  Serious: Yes (Other)
  Sender: FDA-Public Use
  Company Number: PHEH2013US009734

PATIENT
  Age: 14 Year
  Sex: Male
  Weight: 97.1 kg

DRUGS (8)
  1. INTUNIV [Concomitant]
     Active Substance: GUANFACINE HYDROCHLORIDE
  2. ADDERALL XR (AMFETAMINE ASPARTATE, AMFETAMINE SULFAT, DEXAMFETAMINE SACCHARATE, DEXAMFETAMINE SULFATE) [Concomitant]
  3. FANAPT [Suspect]
     Active Substance: ILOPERIDONE
     Indication: MOOD DISORDER DUE TO A GENERAL MEDICAL CONDITION
     Route: 048
     Dates: start: 20130402, end: 20130402
  4. FANAPT [Suspect]
     Active Substance: ILOPERIDONE
     Indication: PSYCHOTIC DISORDER
     Route: 048
     Dates: start: 20130402, end: 20130402
  5. TEMAZEPAM. [Concomitant]
     Active Substance: TEMAZEPAM
  6. FANAPT [Suspect]
     Active Substance: ILOPERIDONE
     Indication: OFF LABEL USE
     Route: 048
     Dates: start: 20130402, end: 20130402
  7. CLONIDINE. [Concomitant]
     Active Substance: CLONIDINE
  8. LUVOX [Concomitant]
     Active Substance: FLUVOXAMINE MALEATE

REACTIONS (1)
  - Tachycardia [None]

NARRATIVE: CASE EVENT DATE: 20130402
